FAERS Safety Report 4569136-9 (Version None)
Quarter: 2005Q1

REPORT INFORMATION
  Report Type: 
  Country: None (occurrence: None)
  Receive Date: 20050118
  Receipt Date: 20040716
  Transmission Date: 20050727
  Serious: Yes (Other)
  Sender: FDA-Public Use
  Company Number: HQWYE335622JUL04

PATIENT
  Age: 47 Year
  Sex: Female

DRUGS (3)
  1. PREMPRO [Suspect]
     Dates: start: 19960101, end: 19960401
  2. PREMARIN [Suspect]
     Dates: start: 19920101
  3. PROVERA [Suspect]
     Dates: start: 19920101, end: 19960401

REACTIONS (1)
  - PULMONARY EMBOLISM [None]
